FAERS Safety Report 6193529-X (Version None)
Quarter: 2009Q2

REPORT INFORMATION
  Report Type: 
  Country: None (occurrence: None)
  Receive Date: 20090514
  Receipt Date: 20090505
  Transmission Date: 20091009
  Serious: Yes (Hospitalization, Other)
  Sender: FDA-Public Use
  Company Number: 59982

PATIENT
  Age: 70 Year
  Sex: Male
  Weight: 72 kg

DRUGS (1)
  1. ATRACURIUM BESYLATE [Suspect]
     Indication: MAINTENANCE OF ANAESTHESIA

REACTIONS (12)
  - APNOEA [None]
  - ASTHENIA [None]
  - BRADYCARDIA [None]
  - DIPLOPIA [None]
  - DRUG ADMINISTRATION ERROR [None]
  - DYSARTHRIA [None]
  - MEDICATION ERROR [None]
  - MUSCLE CONTRACTIONS INVOLUNTARY [None]
  - OXYGEN SATURATION DECREASED [None]
  - RECURRENCE OF NEUROMUSCULAR BLOCKADE [None]
  - RESPIRATORY FAILURE [None]
  - WRONG TECHNIQUE IN DRUG USAGE PROCESS [None]
